FAERS Safety Report 9187436 (Version 2)
Quarter: 2012Q4

REPORT INFORMATION
  Report Type: 
  Country: US (occurrence: US)
  Receive Date: 20121122
  Receipt Date: 20121128
  Transmission Date: 20130627
  Serious: Yes (Other)
  Sender: FDA-Public Use
  Company Number: US-RB-046704-12

PATIENT
  Age: 72 Year
  Sex: Male

DRUGS (4)
  1. MUCINEX FAST MAX CAPLETS COLD + SINUS [Suspect]
     Indication: PRODUCT USED FOR UNKNOWN INDICATION
     Dosage: Took one dose on 11-NOV-2012 and 12-NOV-2012
     Route: 048
     Dates: start: 20121111
  2. MUCINEX FAST MAX CAPLETS COLD + SINUS [Suspect]
  3. MUCINEX FAST MAX CAPLETS COLD + SINUS [Suspect]
  4. OMEGA 369 [Concomitant]
     Indication: PRODUCT USED FOR UNKNOWN INDICATION

REACTIONS (1)
  - Haematochezia [Recovered/Resolved]
